FAERS Safety Report 4434283-9 (Version None)
Quarter: 2004Q3

REPORT INFORMATION
  Report Type: 
  Country: None (occurrence: None)
  Receive Date: 20040825
  Receipt Date: 20040806
  Transmission Date: 20050211
  Serious: Yes (Other)
  Sender: FDA-Public Use
  Company Number: CA_040306796

PATIENT
  Age: 70 Year
  Sex: Female

DRUGS (4)
  1. EVISTA [Suspect]
     Indication: OSTEOPOROSIS
     Dosage: 60 M/1 DAY
     Dates: start: 19990222
  2. AVALIDE [Concomitant]
  3. LIPITOR [Concomitant]
  4. MIACALCIN [Concomitant]

REACTIONS (2)
  - BONE DENSITY DECREASED [None]
  - ENDOMETRIAL CANCER [None]
